FAERS Safety Report 8450953-X (Version None)
Quarter: 2012Q2

REPORT INFORMATION
  Report Type: 
  Country: None (occurrence: None)
  Receive Date: 20120620
  Receipt Date: 20120615
  Transmission Date: 20120825
  Serious: Yes (Death, Hospitalization, Other)
  Sender: FDA-Public Use
  Company Number: DE-ROCHE-1033055

PATIENT
  Sex: Female
  Weight: 45 kg

DRUGS (8)
  1. PREDNISOLONE [Concomitant]
     Indication: DERMATITIS
     Route: 048
     Dates: start: 20080601
  2. ATOSIL [Concomitant]
     Indication: INSOMNIA
     Dosage: 10 DROPS
     Dates: start: 20011201
  3. LEVOTHYROXINE SODIUM [Concomitant]
     Indication: HYPOTHYROIDISM
     Dates: start: 19901201
  4. CLEMASTINE FUMARATE [Concomitant]
     Indication: PRURITUS
     Dosage: 1 TBL
     Dates: start: 20080601
  5. FEXOFENADINE HCL [Concomitant]
     Indication: HYPERSENSITIVITY
     Dates: start: 20080613
  6. VISMODEGIB [Suspect]
     Indication: BASAL CELL CARCINOMA
     Dosage: LAST DOSE PRIOR TO SAE: 12/JAN/2012
     Route: 048
     Dates: start: 20111229
  7. RAMIPRIL [Concomitant]
     Indication: HYPERTENSION
     Dosage: TOTAL DAILY DOSE: 7.5/37.5 MG
     Dates: start: 19971201
  8. PANTOPRAZOLE [Concomitant]
     Indication: GASTRITIS
     Dates: start: 20001201

REACTIONS (2)
  - HYPOGLYCAEMIA [None]
  - LYMPHOMA [None]
